FAERS Safety Report 22787515 (Version 3)
Quarter: 2025Q3

REPORT INFORMATION
  Report Type: Spontaneous
  Country: US (occurrence: US)
  Receive Date: 20230804
  Receipt Date: 20250913
  Transmission Date: 20251021
  Serious: Yes (Other)
  Sender: SANOFI AVENTIS
  Company Number: US-SA-SAC20230803000173

PATIENT
  Age: 60 Year
  Sex: Female
  Weight: 88.9 kg

DRUGS (24)
  1. DUPIXENT [Suspect]
     Active Substance: DUPILUMAB
     Indication: Illness
     Dosage: 300 MG, QOW
     Route: 058
  2. AJOVY [Concomitant]
     Active Substance: FREMANEZUMAB-VFRM
  3. BIOTIN [Concomitant]
     Active Substance: BIOTIN
  4. MUPIROCIN [Concomitant]
     Active Substance: MUPIROCIN
  5. ACETAMINOPHEN\HYDROCODONE [Concomitant]
     Active Substance: ACETAMINOPHEN\HYDROCODONE
  6. ACETAMINOPHEN [Concomitant]
     Active Substance: ACETAMINOPHEN
  7. TIZANIDINE [Concomitant]
     Active Substance: TIZANIDINE
  8. FLUOCINONIDE [Concomitant]
     Active Substance: FLUOCINONIDE
  9. CELECOXIB [Concomitant]
     Active Substance: CELECOXIB
  10. ATORVASTATIN [Concomitant]
     Active Substance: ATORVASTATIN
  11. ANORO ELLIPTA [Concomitant]
     Active Substance: UMECLIDINIUM BROMIDE\VILANTEROL TRIFENATATE
  12. GABAPENTIN [Concomitant]
     Active Substance: GABAPENTIN
  13. CETIRIZINE [Concomitant]
     Active Substance: CETIRIZINE HYDROCHLORIDE
  14. PAROXETINE [Concomitant]
     Active Substance: PAROXETINE
  15. FLUTICASONE PROPIONATE [Concomitant]
     Active Substance: FLUTICASONE PROPIONATE
  16. BUSPIRONE [Concomitant]
     Active Substance: BUSPIRONE HYDROCHLORIDE
  17. TRAZODONE [Concomitant]
     Active Substance: TRAZODONE HYDROCHLORIDE
  18. QUETIAPINE FUMARATE [Concomitant]
     Active Substance: QUETIAPINE FUMARATE
  19. PANTOPRAZOLE [Concomitant]
     Active Substance: PANTOPRAZOLE
  20. DICYCLOMINE [Concomitant]
     Active Substance: DICYCLOMINE HYDROCHLORIDE
  21. TOPIRAMATE [Concomitant]
     Active Substance: TOPIRAMATE
  22. ALBUTEROL SULFATE [Concomitant]
     Active Substance: ALBUTEROL SULFATE
  23. GEMFIBROZIL [Concomitant]
     Active Substance: GEMFIBROZIL
  24. OXCARBAZEPINE [Concomitant]
     Active Substance: OXCARBAZEPINE

REACTIONS (7)
  - Seizure [Unknown]
  - Tremor [Recovering/Resolving]
  - Fatigue [Unknown]
  - Fall [Not Recovered/Not Resolved]
  - Foot fracture [Not Recovered/Not Resolved]
  - Joint injury [Not Recovered/Not Resolved]
  - Nasal operation [Unknown]

NARRATIVE: CASE EVENT DATE: 20230728
